FAERS Safety Report 18335549 (Version 2)
Quarter: 2020Q4

REPORT INFORMATION
  Report Type: Report from Study
  Country: US (occurrence: US)
  Receive Date: 20201001
  Receipt Date: 20201027
  Transmission Date: 20210113
  Serious: Yes (Hospitalization, Other)
  Sender: FDA-Public Use
  Company Number: US-JNJFOC-A-NJ2019-195887

PATIENT
  Age: 42 Year
  Sex: Female

DRUGS (4)
  1. OPSUMIT [Suspect]
     Active Substance: MACITENTAN
     Indication: PULMONARY ARTERIAL HYPERTENSION
     Route: 048
     Dates: start: 20180713
  2. UPTRAVI [Suspect]
     Active Substance: SELEXIPAG
     Dosage: 600 MCG AM, 800 MCG PM
     Route: 048
     Dates: start: 20200716
  3. UPTRAVI [Suspect]
     Active Substance: SELEXIPAG
     Indication: PULMONARY ARTERIAL HYPERTENSION
     Dosage: 400 MCG, BID
     Route: 048
     Dates: start: 20200716
  4. UPTRAVI [Suspect]
     Active Substance: SELEXIPAG
     Route: 048
     Dates: start: 20200716

REACTIONS (12)
  - Weight increased [Unknown]
  - Renal disorder [Recovering/Resolving]
  - Peripheral swelling [Not Recovered/Not Resolved]
  - Right ventricular failure [Recovering/Resolving]
  - Fluid overload [Unknown]
  - Dyspnoea [Unknown]
  - Hospitalisation [Unknown]
  - Fluid retention [Unknown]
  - Headache [Recovering/Resolving]
  - Product dose omission issue [Unknown]
  - Hospice care [Unknown]
  - Abdominal distension [Not Recovered/Not Resolved]

NARRATIVE: CASE EVENT DATE: 20190910
